FAERS Safety Report 4598778-X (Version None)
Quarter: 2005Q1

REPORT INFORMATION
  Report Type: 
  Country: None (occurrence: None)
  Receive Date: 20050301
  Receipt Date: 20050301
  Transmission Date: 20050727
  Serious: Yes (Other)
  Sender: FDA-Public Use
  Company Number: None

PATIENT
  Age: 52 Year
  Sex: Female
  Weight: 133 kg

DRUGS (8)
  1. DULOXETINE 30 MG [Suspect]
     Indication: MAJOR DEPRESSION
     Dosage: 30 MG BID ORAL
     Route: 048
     Dates: start: 20041026, end: 20041030
  2. ATORVASTATIN [Concomitant]
  3. CLOPIDOGREL BISULFATE [Concomitant]
  4. ENALAPRIL [Concomitant]
  5. FLOVENT [Concomitant]
  6. FUROSEMIDE [Concomitant]
  7. WARFARIN SODIUM [Concomitant]
  8. POTASSIUN CHLORIDE [Concomitant]

REACTIONS (1)
  - DIARRHOEA [None]
